FAERS Safety Report 6832472-7 (Version None)
Quarter: 2010Q3

REPORT INFORMATION
  Report Type: 
  Country: None (occurrence: None)
  Receive Date: 20100712
  Receipt Date: 20100702
  Transmission Date: 20110219
  Serious: Yes (Hospitalization)
  Sender: FDA-Public Use
  Company Number: US-ASTRAZENECA-2010SE31014

PATIENT
  Age: 79 Year
  Sex: Female

DRUGS (8)
  1. PRILOSEC [Suspect]
     Route: 048
  2. CRESTOR [Suspect]
     Route: 048
  3. CRESTOR [Suspect]
     Route: 048
  4. CRESTOR [Suspect]
     Route: 048
  5. COUMADIN [Concomitant]
  6. LISINOPRIL [Concomitant]
  7. CARVEDILOL [Concomitant]
  8. PREDNISONE [Concomitant]

REACTIONS (4)
  - CARDIAC PACEMAKER REPLACEMENT [None]
  - COLLAPSE OF LUNG [None]
  - DIARRHOEA [None]
  - GASTROINTESTINAL BACTERIAL INFECTION [None]
